FAERS Safety Report 11733068 (Version 1)
Quarter: 2015Q4

REPORT INFORMATION
  Report Type: Spontaneous
  Country: EG (occurrence: EG)
  Receive Date: 20151113
  Receipt Date: 20151113
  Transmission Date: 20160304
  Serious: Yes (Death)
  Sender: FDA-Public Use
  Company Number: EG-009507513-1511EGY005606

PATIENT
  Age: 70 Year
  Sex: Female

DRUGS (4)
  1. PHENYTOIN. [Concomitant]
     Active Substance: PHENYTOIN
     Indication: SEIZURE
  2. LEVETIRACETAM. [Concomitant]
     Active Substance: LEVETIRACETAM
  3. DORMICUM (MIDAZOLAM HYDROCHLORIDE) [Concomitant]
     Active Substance: MIDAZOLAM HYDROCHLORIDE
     Indication: SEIZURE
  4. TIENAM [Suspect]
     Active Substance: CILASTATIN SODIUM\IMIPENEM
     Indication: URINARY TRACT INFECTION
     Dosage: UNK
     Route: 042

REACTIONS (2)
  - Death [Fatal]
  - Seizure [Fatal]
